FAERS Safety Report 5218293-X (Version None)
Quarter: 2007Q1

REPORT INFORMATION
  Report Type: 
  Country: None (occurrence: None)
  Receive Date: 20061130
  Receipt Date: 20060807
  Transmission Date: 20070707
  Serious: Yes (Hospitalization, Other)
  Sender: FDA-Public Use
  Company Number: US200602005096

PATIENT
  Sex: Male
  Weight: 90.7 kg

DRUGS (4)
  1. ZYPREXA [Suspect]
     Indication: DEPRESSION
     Dosage: 25 MG DAILY 1/D
     Dates: start: 19980101, end: 20000101
  2. SEROQUEL [Concomitant]
  3. PAROXETINE HCL [Concomitant]
  4. ATENOLOL [Concomitant]

REACTIONS (6)
  - BLOOD TRIGLYCERIDES INCREASED [None]
  - DIABETES MELLITUS NON-INSULIN-DEPENDENT [None]
  - METABOLIC DISORDER [None]
  - PANCREATITIS [None]
  - PANCREATITIS CHRONIC [None]
  - PRESCRIBED OVERDOSE [None]
